FAERS Safety Report 9119260 (Version 1)
Quarter: 2013Q1

REPORT INFORMATION
  Report Type: Spontaneous
  Country: SE (occurrence: None)
  Receive Date: 20130130
  Receipt Date: 20130130
  Transmission Date: 20140127
  Serious: Yes (Congenital Anomaly, Other)
  Sender: FDA-Public Use
  Company Number: LOC-01109

PATIENT
  Age: 7 Month
  Sex: Male

DRUGS (9)
  1. LOCOID [Suspect]
     Indication: FOETAL EXPOSURE DURING PREGNANCY
     Route: 064
  2. MILDISON [Suspect]
     Indication: FOETAL EXPOSURE DURING PREGNANCY
     Route: 064
  3. LORATADIN [Suspect]
     Indication: FOETAL EXPOSURE DURING PREGNANCY
     Route: 064
  4. BETNOVAT [Suspect]
     Indication: FOETAL EXPOSURE DURING PREGNANCY
     Route: 064
  5. LEVAXIN [Suspect]
     Indication: FOETAL EXPOSURE DURING PREGNANCY
     Dosage: UID
     Route: 064
  6. RHINOCORT AQUA (BUDESONIDE) [Concomitant]
  7. NIFEREX/0002351/(FERROGLYCINE SULFATE COMPLEX) [Concomitant]
  8. GAVISCON/01405501.(SODIUM ALGINATE, SODIUM BICARBONATE) [Concomitant]
  9. KAVEPENIN (PHENOXYMETHYLPENICILLIN POTASSIUM) [Concomitant]

REACTIONS (2)
  - Congenital genitourinary abnormality [None]
  - Maternal drugs affecting foetus [None]
